FAERS Safety Report 19977830 (Version 2)
Quarter: 2021Q4

REPORT INFORMATION
  Report Type: Spontaneous
  Country: FR (occurrence: FR)
  Receive Date: 20211020
  Receipt Date: 20211025
  Transmission Date: 20220303
  Serious: Yes (Other)
  Sender: FDA-Public Use
  Company Number: None

PATIENT
  Age: 55 Year
  Sex: Male
  Weight: 91 kg

DRUGS (1)
  1. MIDAZOLAM [Suspect]
     Active Substance: MIDAZOLAM
     Indication: Muscle relaxant therapy
     Dosage: 10 MILLIGRAM, TOTAL
     Route: 042
     Dates: start: 20210630, end: 20210630

REACTIONS (4)
  - Sedation [Recovered/Resolved]
  - Product administration error [Recovered/Resolved]
  - Product confusion [Recovered/Resolved]
  - Product selection error [Recovered/Resolved]

NARRATIVE: CASE EVENT DATE: 20210630
